FAERS Safety Report 9540827 (Version 2)
Quarter: 2014Q3

REPORT INFORMATION
  Report Type: Report from Study
  Country: MX (occurrence: MX)
  Receive Date: 20130920
  Receipt Date: 20140718
  Transmission Date: 20150326
  Serious: Yes (Other)
  Sender: FDA-Public Use
  Company Number: PHHY2013MX104903

PATIENT
  Age: 69 Year
  Sex: Female

DRUGS (7)
  1. ACLASTA [Suspect]
     Active Substance: ZOLEDRONIC ACID
     Dosage: 5 MG/100ML, YEARLY
     Route: 042
     Dates: start: 20130906
  2. PRADAXA [Concomitant]
     Active Substance: DABIGATRAN ETEXILATE MESYLATE
     Indication: PROPHYLAXIS
     Dosage: 1 DF, DAILY
     Dates: start: 201308
  3. KARET [Concomitant]
     Indication: THYROID DISORDER
     Dosage: 1 DF, DAILY
     Dates: start: 2003
  4. OMEGA 3 [Concomitant]
     Active Substance: OMEGA-3 FATTY ACIDS
     Dosage: 2 DF, DAILY
     Dates: start: 2010
  5. ACLASTA [Suspect]
     Active Substance: ZOLEDRONIC ACID
     Indication: OSTEOPENIA
     Dosage: 5 MG/100ML, YEARLY
     Route: 042
     Dates: start: 2007
  6. ROCALTROL [Concomitant]
     Active Substance: CALCITRIOL
     Dosage: 1 DF, DAILY
     Dates: start: 2007
  7. CALTRATE +D [Concomitant]
     Indication: BONE DISORDER
     Dosage: 1 DF, DAILY
     Dates: start: 2007

REACTIONS (11)
  - Emotional distress [Recovering/Resolving]
  - Nausea [Recovering/Resolving]
  - Arrhythmia [Not Recovered/Not Resolved]
  - Blood glucose increased [Recovering/Resolving]
  - Blood pressure systolic increased [Recovering/Resolving]
  - Pyrexia [Recovering/Resolving]
  - Depression [Recovering/Resolving]
  - Atrial fibrillation [Not Recovered/Not Resolved]
  - Decreased appetite [Recovering/Resolving]
  - Tinnitus [Recovering/Resolving]
  - Chills [Recovering/Resolving]

NARRATIVE: CASE EVENT DATE: 2012
